FAERS Safety Report 4977364-3 (Version None)
Quarter: 2006Q2

REPORT INFORMATION
  Report Type: 
  Country: None (occurrence: None)
  Receive Date: 20060413
  Receipt Date: 20060405
  Transmission Date: 20061013
  Serious: Yes (Hospitalization)
  Sender: FDA-Public Use
  Company Number: HQWYE344515MAR06

PATIENT
  Age: 25 Year
  Sex: Female

DRUGS (1)
  1. LEVONORGESTREL + ETHINYL ESTRADIOL [Suspect]
     Indication: ORAL CONTRACEPTION
     Dosage: 1 TABLET 1X PER  1 DAY, ORAL
     Route: 048
     Dates: start: 20060203, end: 20060221

REACTIONS (2)
  - ABDOMINAL PAIN LOWER [None]
  - MENORRHAGIA [None]
